FAERS Safety Report 9442759 (Version 1)
Quarter: 2013Q3

REPORT INFORMATION
  Report Type: Spontaneous
  Country: US (occurrence: US)
  Receive Date: 20130806
  Receipt Date: 20130806
  Transmission Date: 20140515
  Serious: No
  Sender: FDA-Public Use
  Company Number: US-ABBOTT-13P-163-1112636-00

PATIENT
  Age: 57 Year
  Sex: Female
  Weight: 61.29 kg

DRUGS (8)
  1. DEPAKOTE ER [Suspect]
     Indication: COMPLEX PARTIAL SEIZURES
     Dates: start: 2012
  2. GABAPENTIN [Concomitant]
     Indication: COMPLEX PARTIAL SEIZURES
     Dates: start: 2012
  3. ESTRADIOL [Concomitant]
     Indication: OESTROGEN REPLACEMENT THERAPY
     Dosage: PATCH
  4. PYRIDOSTIGMINE [Concomitant]
     Indication: MYASTHENIA GRAVIS
  5. CALCIUM [Concomitant]
     Indication: MINERAL SUPPLEMENTATION
  6. VITAMIN D [Concomitant]
     Indication: VITAMIN SUPPLEMENTATION
  7. VITAMIN D3 [Concomitant]
     Indication: VITAMIN SUPPLEMENTATION
  8. ACTONEL [Concomitant]
     Indication: OSTEOPOROSIS

REACTIONS (7)
  - Chromaturia [Not Recovered/Not Resolved]
  - Restlessness [Not Recovered/Not Resolved]
  - Decreased appetite [Recovered/Resolved]
  - Liver disorder [Not Recovered/Not Resolved]
  - Hepatic enzyme increased [Not Recovered/Not Resolved]
  - Agitation [Not Recovered/Not Resolved]
  - Weight decreased [Recovered/Resolved]
